FAERS Safety Report 22128494 (Version 1)
Quarter: 2023Q1

REPORT INFORMATION
  Report Type: Spontaneous
  Country: US (occurrence: US)
  Receive Date: 20230323
  Receipt Date: 20230323
  Transmission Date: 20230417
  Serious: Yes (Hospitalization)
  Sender: FDA-Public Use
  Company Number: US-SA-SAC20230321000761

PATIENT
  Sex: Female
  Weight: 59.5 kg

DRUGS (5)
  1. NEXVIAZYME [Suspect]
     Active Substance: AVALGLUCOSIDASE ALFA-NGPT
     Indication: Glycogen storage disease type II
     Dosage: 20 MG/KG, QOW
     Route: 042
     Dates: start: 20211208
  2. IBUPROFEN [Concomitant]
     Active Substance: IBUPROFEN
  3. PEPCID [Concomitant]
     Active Substance: FAMOTIDINE
  4. VIMPAT [Concomitant]
     Active Substance: LACOSAMIDE
  5. BACLOFEN [Concomitant]
     Active Substance: BACLOFEN

REACTIONS (1)
  - Colitis [Unknown]
